FAERS Safety Report 5977987-9 (Version None)
Quarter: 2008Q4

REPORT INFORMATION
  Report Type: 
  Country: None (occurrence: None)
  Receive Date: 20081203
  Receipt Date: 20081124
  Transmission Date: 20090506
  Serious: Yes (Other)
  Sender: FDA-Public Use
  Company Number: US-CELGENEUS-163-21880-08110715

PATIENT
  Sex: Female

DRUGS (3)
  1. REVLIMID [Suspect]
     Indication: MULTIPLE MYELOMA
     Route: 048
     Dates: start: 20081101
  2. REVLIMID [Suspect]
     Route: 048
     Dates: start: 20081024, end: 20081111
  3. REVLIMID [Suspect]
     Route: 048
     Dates: start: 20060925, end: 20070101

REACTIONS (3)
  - DYSPHAGIA [None]
  - HYPOAESTHESIA [None]
  - THROAT TIGHTNESS [None]
